FAERS Safety Report 6885325-2 (Version None)
Quarter: 2010Q3

REPORT INFORMATION
  Report Type: 
  Country: None (occurrence: None)
  Receive Date: 20100729
  Receipt Date: 20100729
  Transmission Date: 20110219
  Serious: Yes (Other)
  Sender: FDA-Public Use
  Company Number: None

PATIENT
  Age: 65 Year
  Sex: Female
  Weight: 60.1016 kg

DRUGS (1)
  1. MIRTAZAPINE [Suspect]
     Indication: AFFECTIVE DISORDER
     Dosage: 15 MG ONCE DAILY PO
     Route: 048
     Dates: start: 20100618, end: 20100621

REACTIONS (5)
  - ARTHRALGIA [None]
  - DEPRESSION [None]
  - DISEASE RECURRENCE [None]
  - JOINT SWELLING [None]
  - PRODUCT SUBSTITUTION ISSUE [None]
